FAERS Safety Report 6507948-2 (Version None)
Quarter: 2009Q4

REPORT INFORMATION
  Report Type: 
  Country: None (occurrence: None)
  Receive Date: 20091221
  Receipt Date: 20091216
  Transmission Date: 20100525
  Serious: No
  Sender: FDA-Public Use
  Company Number: B0615481A

PATIENT
  Sex: Female

DRUGS (5)
  1. LAMICTAL [Suspect]
     Dosage: 200MG AT NIGHT
     Route: 065
     Dates: start: 20081021, end: 20091205
  2. PRIADEL [Concomitant]
     Dosage: 700MG PER DAY
     Route: 048
     Dates: start: 20050906
  3. RISPERIDONE [Concomitant]
     Dates: start: 20080130
  4. DALMANE [Concomitant]
     Dates: start: 20090707
  5. LYRICA [Concomitant]

REACTIONS (6)
  - CONTUSION [None]
  - NEUTROPHIL COUNT INCREASED [None]
  - RASH [None]
  - RASH GENERALISED [None]
  - WHITE BLOOD CELL COUNT DECREASED [None]
  - WHITE BLOOD CELL COUNT INCREASED [None]
